FAERS Safety Report 9926245 (Version 2)
Quarter: 2014Q1

REPORT INFORMATION
  Report Type: Spontaneous
  Country: AU (occurrence: AU)
  Receive Date: 20140226
  Receipt Date: 20140228
  Transmission Date: 20141002
  Serious: Yes (Death, Other)
  Sender: FDA-Public Use
  Company Number: PHHY2014AU023388

PATIENT
  Age: 49 Year
  Sex: Male

DRUGS (3)
  1. SANDOSTATIN LAR [Suspect]
     Dosage: UNK UKN, UNK
     Route: 030
  2. TESTOSTERONE [Concomitant]
     Dosage: UNK UKN, UNK
  3. THYROXINE [Concomitant]
     Dosage: UNK UKN, UNK

REACTIONS (2)
  - Post procedural complication [Fatal]
  - Cholelithiasis [Unknown]
